FAERS Safety Report 10684103 (Version 1)
Quarter: 2014Q4

REPORT INFORMATION
  Report Type: Spontaneous
  Country: CH (occurrence: CH)
  Receive Date: 20141231
  Receipt Date: 20141231
  Transmission Date: 20150529
  Serious: Yes (Hospitalization)
  Sender: FDA-Public Use
  Company Number: CH-ASTRAZENECA-2014SE98635

PATIENT
  Age: 31107 Day
  Sex: Female
  Weight: 78 kg

DRUGS (5)
  1. ZOLPIDEM [Concomitant]
     Active Substance: ZOLPIDEM\ZOLPIDEM TARTRATE
     Indication: SLEEP DISORDER
     Route: 048
  2. ATACAND PLUS [Suspect]
     Active Substance: CANDESARTAN CILEXETIL\HYDROCHLOROTHIAZIDE
     Indication: HYPERTENSION
     Route: 048
     Dates: end: 20140709
  3. SAROTEN RETARD [Interacting]
     Active Substance: AMITRIPTYLINE
     Indication: DEPRESSION
     Route: 048
  4. SAROTEN RETARD [Interacting]
     Active Substance: AMITRIPTYLINE
     Indication: DEPRESSION
     Route: 048
     Dates: start: 20140707, end: 20140709
  5. LASIX [Interacting]
     Active Substance: FUROSEMIDE
     Indication: HYPERTENSION
     Route: 048
     Dates: end: 20140709

REACTIONS (3)
  - Hypokalaemia [Recovered/Resolved]
  - Inappropriate antidiuretic hormone secretion [Recovered/Resolved]
  - Drug interaction [Unknown]

NARRATIVE: CASE EVENT DATE: 20140709
